FAERS Safety Report 8399707-3 (Version None)
Quarter: 2012Q1

REPORT INFORMATION
  Report Type: 
  Country: None (occurrence: None)
  Receive Date: 20120323
  Receipt Date: 20110719
  Transmission Date: 20120608
  Serious: Yes (Other)
  Sender: FDA-Public Use
  Company Number: 163-21880-11072388

PATIENT
  Age: 52 Year
  Sex: Male

DRUGS (9)
  1. OXYCODONE HCL [Concomitant]
  2. FLOVENT HFA [Concomitant]
  3. RITALIN [Concomitant]
  4. OMEPRAZOLE [Concomitant]
  5. DIAZEPAM [Concomitant]
  6. DEXAMETHASONE [Concomitant]
  7. CYMBALTA [Concomitant]
  8. ALBUTEROL SULFATE [Concomitant]
  9. REVLIMID [Suspect]
     Indication: MULTIPLE MYELOMA
     Dosage: 10 MG, DAILY FOR 21 DAYS, PO
     Route: 048
     Dates: start: 20110517

REACTIONS (1)
  - RASH GENERALISED [None]
